FAERS Safety Report 19889899 (Version 1)
Quarter: 2021Q3

REPORT INFORMATION
  Report Type: Spontaneous
  Country: TR (occurrence: TR)
  Receive Date: 20210928
  Receipt Date: 20210928
  Transmission Date: 20211014
  Serious: Yes (Hospitalization, Other)
  Sender: FDA-Public Use
  Company Number: TR-ALVOGEN-2021-ALVOGEN-117585

PATIENT
  Age: 63 Year
  Sex: Male

DRUGS (3)
  1. FENTANYL. [Suspect]
     Active Substance: FENTANYL
     Indication: DRUG USE DISORDER
     Dosage: EVERY TWO DAYS FOR THE LAST ONE AND A HALF MONTHS
     Route: 062
  2. FENTANYL. [Interacting]
     Active Substance: FENTANYL
     Indication: DRUG USE DISORDER
     Dosage: EVERY THREE DAYS IN THE FOLLOWING WEEKS
     Route: 062
  3. FENTANYL. [Interacting]
     Active Substance: FENTANYL
     Indication: DRUG USE DISORDER
     Dosage: TRANSDERMAL PATCH, EVERY FIVE DAYS IN THE FIRST TWO WEEKS OF USE
     Route: 062

REACTIONS (16)
  - Drug use disorder [Recovered/Resolved]
  - Withdrawal syndrome [Recovered/Resolved]
  - Myalgia [Recovered/Resolved]
  - Rhinorrhoea [Recovered/Resolved]
  - Anger [Recovered/Resolved]
  - Malaise [Recovered/Resolved]
  - Prescription drug used without a prescription [Recovered/Resolved]
  - Asthenia [Recovered/Resolved]
  - Alcohol interaction [Recovered/Resolved]
  - Nausea [Recovered/Resolved]
  - Restlessness [Recovered/Resolved]
  - Paraesthesia [Recovered/Resolved]
  - Insomnia [Recovered/Resolved]
  - Intentional product misuse [Recovered/Resolved]
  - Anxiety [Recovered/Resolved]
  - Arthralgia [Recovered/Resolved]
